FAERS Safety Report 19736761 (Version 1)
Quarter: 2021Q3

REPORT INFORMATION
  Report Type: Spontaneous
  Country: US (occurrence: US)
  Receive Date: 20210820
  Receipt Date: 20210820
  Transmission Date: 20211014
  Serious: No
  Sender: FDA-Public Use
  Company Number: None

PATIENT
  Sex: Female

DRUGS (1)
  1. ADAKVEO [Suspect]
     Active Substance: CRIZANLIZUMAB-TMCA
     Indication: SICKLE CELL DISEASE
     Route: 042
     Dates: start: 20200305

REACTIONS (4)
  - Therapy interrupted [None]
  - Sickle cell anaemia with crisis [None]
  - Pneumonia [None]
  - Nausea [None]
